FAERS Safety Report 9702868 (Version 1)
Quarter: 2013Q4

REPORT INFORMATION
  Report Type: Spontaneous
  Country: GB (occurrence: GB)
  Receive Date: 20131121
  Receipt Date: 20131121
  Transmission Date: 20140711
  Serious: Yes (Other)
  Sender: FDA-Public Use
  Company Number: GB-RB-060726-13

PATIENT
  Sex: Male

DRUGS (1)
  1. BUPRENORPHINE [Suspect]
     Indication: PRODUCT USED FOR UNKNOWN INDICATION
     Route: 062
     Dates: start: 201306, end: 2013

REACTIONS (6)
  - Accidental overdose [Unknown]
  - Eczema [Not Recovered/Not Resolved]
  - Dyshidrotic eczema [Unknown]
  - Application site irritation [Unknown]
  - Rash pruritic [Unknown]
  - Pruritus generalised [Unknown]
